FAERS Safety Report 10156794 (Version 1)
Quarter: 2014Q2

REPORT INFORMATION
  Report Type: Spontaneous
  Country: GB (occurrence: None)
  Receive Date: 20140505
  Receipt Date: 20140505
  Transmission Date: 20141212
  Serious: Yes (Congenital Anomaly)
  Sender: FDA-Public Use
  Company Number: 2014P1003514

PATIENT
  Sex: Male

DRUGS (2)
  1. VALPROATE SODIUM [Suspect]
     Indication: EPILEPSY
     Route: 064
  2. CARBAMAZEPINE [Suspect]
     Indication: EPILEPSY
     Route: 064

REACTIONS (4)
  - Atrial septal defect [None]
  - Foetal anticonvulsant syndrome [None]
  - Coloboma [None]
  - Maternal drugs affecting foetus [None]
